FAERS Safety Report 8930468 (Version 1)
Quarter: 2012Q4

REPORT INFORMATION
  Report Type: 
  Country: US (occurrence: US)
  Receive Date: 20121128
  Receipt Date: 20121128
  Transmission Date: 20130627
  Serious: Yes (Hospitalization, Disabling, Other)
  Sender: FDA-Public Use
  Company Number: US-ASTRAZENECA-2012SE74569

PATIENT
  Age: 40 Year
  Sex: Male
  Weight: 127 kg

DRUGS (14)
  1. CRESTOR [Suspect]
     Indication: PERIPHERAL ARTERIAL OCCLUSIVE DISEASE
     Route: 048
     Dates: start: 201204
  2. LISINOPRIL [Suspect]
     Indication: BLOOD PRESSURE
     Route: 048
     Dates: start: 2011
  3. LOPRESSOR [Concomitant]
     Indication: BLOOD PRESSURE
     Route: 048
     Dates: start: 201204
  4. LOPRESSOR [Concomitant]
     Indication: BLOOD PRESSURE
     Route: 048
     Dates: start: 2011, end: 201204
  5. PLAVIX [Concomitant]
     Indication: CARDIAC DISORDER
     Route: 048
     Dates: start: 201204
  6. LASIX [Concomitant]
     Indication: CARDIAC DISORDER
     Route: 048
     Dates: start: 201204
  7. HYDRALAZINE [Concomitant]
     Indication: BLOOD PRESSURE
     Route: 048
     Dates: start: 201204
  8. PROCARDIA XL [Concomitant]
     Indication: BLOOD PRESSURE
     Route: 048
     Dates: start: 201204
  9. LANTUS [Concomitant]
     Indication: DIABETES MELLITUS
     Route: 058
     Dates: start: 201204
  10. LANTUS [Concomitant]
     Indication: DIABETES MELLITUS
     Route: 058
     Dates: start: 201207
  11. APIDRA [Concomitant]
     Indication: DIABETES MELLITUS
     Route: 058
     Dates: start: 201204
  12. ZYRTEC [Concomitant]
     Indication: MULTIPLE ALLERGIES
     Route: 048
     Dates: start: 2002
  13. ADVIL [Concomitant]
     Indication: PAIN
     Route: 048
  14. EXCEDRIN [Concomitant]
     Indication: HEADACHE
     Dosage: AS REQUIRED

REACTIONS (5)
  - Blood glucose increased [Unknown]
  - Dyspnoea [Unknown]
  - Cerebrovascular accident [Unknown]
  - Type 1 diabetes mellitus [Unknown]
  - Off label use [Unknown]
